FAERS Safety Report 5524102-1 (Version None)
Quarter: 2007Q4

REPORT INFORMATION
  Report Type: 
  Country: None (occurrence: None)
  Receive Date: 20071121
  Receipt Date: 20071116
  Transmission Date: 20080405
  Serious: Yes (Hospitalization)
  Sender: FDA-Public Use
  Company Number: US-ROXANE LABORATORIES, INC-2007-DE-06804GD

PATIENT
  Age: 51 Year
  Sex: Male

DRUGS (2)
  1. SERTRALINE [Suspect]
  2. ZOMIG [Suspect]

REACTIONS (6)
  - AGITATION [None]
  - FLUSHING [None]
  - HYPERHIDROSIS [None]
  - LEUKOCYTOSIS [None]
  - SEROTONIN SYNDROME [None]
  - TACHYCARDIA [None]
